FAERS Safety Report 4834763-8 (Version None)
Quarter: 2005Q4

REPORT INFORMATION
  Report Type: 
  Country: None (occurrence: None)
  Receive Date: 20051122
  Receipt Date: 20050927
  Transmission Date: 20060501
  Serious: No
  Sender: FDA-Public Use
  Company Number: US-BRISTOL-MYERS SQUIBB COMPANY-13123443

PATIENT
  Age: 65 Year
  Sex: Male
  Weight: 79 kg

DRUGS (8)
  1. PRAVACHOL [Suspect]
     Dates: end: 20040201
  2. ZEBETA [Concomitant]
  3. ZIAC [Concomitant]
  4. FLOMAX [Concomitant]
  5. MULTI-VITAMIN [Concomitant]
  6. ASCORBIC ACID [Concomitant]
  7. CHONDROITIN SULFATE + GLUCOSAMINE [Concomitant]
  8. ASPIRIN [Concomitant]

REACTIONS (1)
  - MYALGIA [None]
